FAERS Safety Report 7905837 (Version 4)
Quarter: 2013Q2

REPORT INFORMATION
  Report Type: Spontaneous
  Country: US (occurrence: US)
  Receive Date: 20110420
  Receipt Date: 20130503
  Transmission Date: 20140414
  Serious: Yes (Hospitalization, Other)
  Sender: FDA-Public Use
  Company Number: US-BAYER-201040690NA

PATIENT
  Age: 27 Year
  Sex: Female
  Weight: 72.56 kg

DRUGS (13)
  1. YAZ [Suspect]
     Indication: ACNE
     Route: 048
  2. YASMIN [Suspect]
     Indication: ACNE
     Route: 048
  3. YASMIN [Suspect]
     Indication: PREMENSTRUAL SYNDROME
  4. OCELLA [Suspect]
     Indication: ACNE
     Route: 048
  5. NEURONTIN [Concomitant]
     Dosage: 300-600
  6. PREDNISONE [Concomitant]
     Dosage: 30-10 MG DAILY FOR 3 DAYS, THEN 10 MG EVERY OTHER DAY.
  7. PREDNISONE [Concomitant]
     Dosage: 10 MG, QD
  8. ZANTAC [Concomitant]
     Dosage: UNK UNK, QD
  9. ZYRTEC [Concomitant]
     Dosage: 10 MG, QD
  10. PROZAC [Concomitant]
     Dosage: 20-30 MG
  11. PEPCID [Concomitant]
     Dosage: 20 MG, TID
  12. PERIACTIN [Concomitant]
     Dosage: 4 TWICE A DAY
  13. TRIAMCINOLON [Concomitant]
     Dosage: UNK UNK, TID

REACTIONS (4)
  - Pulmonary embolism [None]
  - Pain [None]
  - Cholecystitis chronic [None]
  - Pulmonary embolism [None]
